FAERS Safety Report 18571731 (Version 2)
Quarter: 2020Q4

REPORT INFORMATION
  Report Type: Report from Study
  Country: FR (occurrence: FR)
  Receive Date: 20201202
  Receipt Date: 20201209
  Transmission Date: 20210114
  Serious: Yes (Hospitalization)
  Sender: FDA-Public Use
  Company Number: FR-TAKEDA-FR201511575

PATIENT
  Age: 14 Year
  Sex: Male
  Weight: 17 kg

DRUGS (4)
  1. ACIDE VALPROIQUE [Concomitant]
     Active Substance: VALPROIC ACID
     Indication: EPILEPSY
     Dosage: 250 MG, 2X/DAY:BID
     Route: 048
     Dates: start: 20110608
  2. IDURSULFASE [Suspect]
     Active Substance: IDURSULFASE
     Indication: MUCOPOLYSACCHARIDOSIS II
     Dosage: 12 MILLIGRAM, 1/WEEK (3 VIALS ONCE A WEEK)
     Route: 041
     Dates: start: 20061215
  3. ELAPRASE [Concomitant]
     Active Substance: IDURSULFASE
  4. ALGOSTERIL [Concomitant]
     Indication: ESCHAR
     Dosage: UNK, UNKNOWN
     Route: 065
     Dates: start: 20110721

REACTIONS (3)
  - Liquid product physical issue [Unknown]
  - Dehydration [Recovered/Resolved]
  - Cachexia [Recovered/Resolved]

NARRATIVE: CASE EVENT DATE: 20110721
